FAERS Safety Report 18473408 (Version 1)
Quarter: 2020Q4

REPORT INFORMATION
  Report Type: Spontaneous
  Country: US (occurrence: US)
  Receive Date: 20201106
  Receipt Date: 20201106
  Transmission Date: 20210114
  Serious: No
  Sender: FDA-Public Use
  Company Number: None

PATIENT
  Age: 69 Year
  Sex: Female
  Weight: 82.35 kg

DRUGS (15)
  1. CHLORTHALIDONE 25 MG [Suspect]
     Active Substance: CHLORTHALIDONE
     Dosage: ?          QUANTITY:1 TABLET(S);?
     Dates: start: 20201105
  2. HYALURONIC ACID [Concomitant]
     Active Substance: HYALURONIC ACID
  3. CARVEDILOL. [Concomitant]
     Active Substance: CARVEDILOL
  4. VITAMIN D [Concomitant]
     Active Substance: VITAMIN D NOS
  5. ISOSORBIDE MONIONIT ER [Concomitant]
  6. MAGNESIUM GLYCINATE [Concomitant]
     Active Substance: MAGNESIUM GLYCINATE
  7. CILOSTAZOL. [Concomitant]
     Active Substance: CILOSTAZOL
  8. LOSARTAN POTASSIUM. [Concomitant]
     Active Substance: LOSARTAN POTASSIUM
  9. VITAMIN C [Concomitant]
     Active Substance: ASCORBIC ACID
  10. NOVOLIN 70/30 [Concomitant]
     Active Substance: INSULIN HUMAN
  11. FOLIC ACID. [Concomitant]
     Active Substance: FOLIC ACID
  12. VITAMIN B12 [Concomitant]
     Active Substance: CYANOCOBALAMIN
  13. WOMEN^S MULTI [Concomitant]
  14. ATORVASTATIN CALCIUM. [Concomitant]
     Active Substance: ATORVASTATIN CALCIUM
  15. FISH OIL [Concomitant]
     Active Substance: FISH OIL

REACTIONS (1)
  - Diarrhoea [None]

NARRATIVE: CASE EVENT DATE: 20201106
